FAERS Safety Report 10903061 (Version 2)
Quarter: 2015Q1

REPORT INFORMATION
  Report Type: Spontaneous
  Country: BR (occurrence: BR)
  Receive Date: 20150311
  Receipt Date: 20150312
  Transmission Date: 20150721
  Serious: Yes (Hospitalization)
  Sender: FDA-Public Use
  Company Number: BR-ROCHE-1547739

PATIENT
  Sex: Female
  Weight: 60 kg

DRUGS (3)
  1. RIVOTRIL [Interacting]
     Active Substance: CLONAZEPAM
     Indication: SEDATION
  2. LYRICA [Interacting]
     Active Substance: PREGABALIN
     Indication: FIBROMYALGIA
     Dosage: ADMINISTERED BEFORE GOING TO SLEEP
     Route: 048
  3. RIVOTRIL [Suspect]
     Active Substance: CLONAZEPAM
     Indication: DEPRESSION
     Route: 065
     Dates: start: 1990

REACTIONS (9)
  - Umbilical hernia [Unknown]
  - Fibromyalgia [Not Recovered/Not Resolved]
  - Migraine [Not Recovered/Not Resolved]
  - Agitation [Not Recovered/Not Resolved]
  - Mucosa vesicle [Unknown]
  - Somnolence [Unknown]
  - Pneumonitis [Not Recovered/Not Resolved]
  - Thyroid disorder [Not Recovered/Not Resolved]
  - Drug interaction [Unknown]
